FAERS Safety Report 24354853 (Version 2)
Quarter: 2025Q2

REPORT INFORMATION
  Report Type: Spontaneous
  Country: US (occurrence: US)
  Receive Date: 20240923
  Receipt Date: 20250527
  Transmission Date: 20250716
  Serious: No
  Sender: DAIICHI
  Company Number: US-DAIICHI SANKYO, INC.-DS-2024-100939-USAA

PATIENT
  Sex: Female

DRUGS (1)
  1. TURALIO [Suspect]
     Active Substance: PEXIDARTINIB HYDROCHLORIDE
     Indication: Synovitis
     Dosage: 250 MG, BID (2 CAPSULES TWICE DAILY)
     Route: 048
     Dates: start: 20240831

REACTIONS (2)
  - Rash [Recovered/Resolved]
  - Sunburn [Not Recovered/Not Resolved]
